FAERS Safety Report 14966814 (Version 1)
Quarter: 2018Q2

REPORT INFORMATION
  Report Type: Spontaneous
  Country: TT (occurrence: TT)
  Receive Date: 20180604
  Receipt Date: 20180604
  Transmission Date: 20180711
  Serious: Yes (Other)
  Sender: FDA-Public Use
  Company Number: TT-CHEPLA-1926502

PATIENT
  Age: 28 Year
  Sex: Male
  Weight: 101.7 kg

DRUGS (1)
  1. XENICAL [Suspect]
     Active Substance: ORLISTAT
     Indication: OBESITY
     Route: 048
     Dates: start: 20161208, end: 20161219

REACTIONS (3)
  - Anal fissure [Recovering/Resolving]
  - Frequent bowel movements [Recovering/Resolving]
  - Diarrhoea [Recovering/Resolving]

NARRATIVE: CASE EVENT DATE: 20161212
